FAERS Safety Report 11198937 (Version 2)
Quarter: 2015Q2

REPORT INFORMATION
  Report Type: Spontaneous
  Country: ES (occurrence: ES)
  Receive Date: 20150618
  Receipt Date: 20150629
  Transmission Date: 20150821
  Serious: Yes (Other)
  Sender: FDA-Public Use
  Company Number: ES-PFIZER INC-2015200669

PATIENT
  Age: 55 Year
  Sex: Male

DRUGS (7)
  1. DUROGESIC [Concomitant]
     Active Substance: FENTANYL
     Dosage: 25 EVERY 72 HOURS
  2. SEVIKAR [Concomitant]
     Active Substance: AMLODIPINE BESYLATE\OLMESARTAN MEDOXOMIL
     Dosage: 40 EVERY 24 HOURS
  3. SUTENT [Suspect]
     Active Substance: SUNITINIB MALATE
     Dosage: UNK
     Route: 048
     Dates: start: 20150515
  4. SUTENT [Suspect]
     Active Substance: SUNITINIB MALATE
     Dosage: 37.5 MG, CYCLIC (4 WEEKS ON/2 WEEKS OFF)
     Route: 048
     Dates: start: 201410, end: 20150417
  5. AUGMENTINE /02043401/ [Concomitant]
     Indication: TOOTH EXTRACTION
     Dosage: 875 EVERY 8 HOURS DISCONTINUOUSLY
  6. SUTENT [Suspect]
     Active Substance: SUNITINIB MALATE
     Indication: RENAL CANCER METASTATIC
     Dosage: 50 MG, CYCLIC (4 WEEKS ON/2 WEEKS OFF)
     Route: 048
     Dates: start: 20140619, end: 201410
  7. NOLOTIL /06276702/ [Concomitant]
     Indication: PAIN
     Dosage: UNK, AS NEEDED

REACTIONS (7)
  - Periodontitis [Unknown]
  - Dental caries [Unknown]
  - Fistula [Unknown]
  - Cellulitis [Unknown]
  - Oral infection [Unknown]
  - Asthenia [Unknown]
  - Oroantral fistula [Unknown]

NARRATIVE: CASE EVENT DATE: 201504
